FAERS Safety Report 9337248 (Version 2)
Quarter: 2013Q3

REPORT INFORMATION
  Report Type: Spontaneous
  Country: US (occurrence: US)
  Receive Date: 20130607
  Receipt Date: 20130701
  Transmission Date: 20140515
  Serious: Yes (Hospitalization, Other)
  Sender: FDA-Public Use
  Company Number: US-JNJFOC-20130600251

PATIENT
  Age: 62 Year
  Sex: Male

DRUGS (5)
  1. REMICADE [Suspect]
     Indication: CROHN^S DISEASE
     Route: 042
     Dates: end: 2013
  2. REMICADE [Suspect]
     Indication: CROHN^S DISEASE
     Route: 042
     Dates: end: 2012
  3. REMICADE [Suspect]
     Indication: CROHN^S DISEASE
     Dosage: INTERVAL REPORTED AS 6 HOURLY
     Route: 042
     Dates: start: 2010
  4. AZATHIOPRINE [Concomitant]
     Route: 065
     Dates: start: 2010
  5. 6-MERCAPTOPURINE [Concomitant]
     Route: 065

REACTIONS (1)
  - Vitreous haemorrhage [Recovering/Resolving]
